FAERS Safety Report 4292202-2 (Version None)
Quarter: 2004Q1

REPORT INFORMATION
  Report Type: 
  Country: None (occurrence: None)
  Receive Date: 20040126
  Receipt Date: 20030911
  Transmission Date: 20041129
  Serious: No
  Sender: FDA-Public Use
  Company Number: USA030843568

PATIENT
  Age: 76 Year
  Sex: Female
  Weight: 52 kg

DRUGS (7)
  1. FORTEO [Suspect]
     Indication: OSTEOPOROSIS
     Dosage: 20 UG/DAY
     Dates: start: 20030618, end: 20030812
  2. EVISTA [Concomitant]
  3. FOSAMAX [Concomitant]
  4. DYAZIDE [Concomitant]
  5. SYNTHROID [Concomitant]
  6. CALCIUM [Concomitant]
  7. MICRO-K (POTASSIUM CHLORIDE) [Concomitant]

REACTIONS (8)
  - CHILLS [None]
  - DYSURIA [None]
  - GENITAL PRURITUS FEMALE [None]
  - POLLAKIURIA [None]
  - PYREXIA [None]
  - URINARY TRACT INFECTION [None]
  - VAGINAL BURNING SENSATION [None]
  - VULVAL ERYTHEMA [None]
